FAERS Safety Report 18302125 (Version 1)
Quarter: 2020Q3

REPORT INFORMATION
  Report Type: Spontaneous
  Country: US (occurrence: US)
  Receive Date: 20200923
  Receipt Date: 20200923
  Transmission Date: 20201103
  Serious: No
  Sender: FDA-Public Use
  Company Number: US-ASTELLAS-2020US021099

PATIENT
  Sex: Female

DRUGS (1)
  1. PADCEV [Suspect]
     Active Substance: ENFORTUMAB VEDOTIN-EJFV
     Indication: TRANSITIONAL CELL CARCINOMA RECURRENT
     Dosage: 1 MG/KG, CYCLIC (DAY 1 AND 15 OF 28 DAY CYCLE)
     Route: 065

REACTIONS (2)
  - Keratitis [Recovered/Resolved]
  - Rash [Recovered/Resolved]
